FAERS Safety Report 16308973 (Version 1)
Quarter: 2019Q2

REPORT INFORMATION
  Report Type: Spontaneous
  Country: US (occurrence: US)
  Receive Date: 20190514
  Receipt Date: 20190514
  Transmission Date: 20190711
  Serious: No
  Sender: FDA-Public Use
  Company Number: US-PFIZER INC-2018399777

PATIENT
  Age: 56 Year
  Sex: Female
  Weight: 86.12 kg

DRUGS (2)
  1. LYRICA [Suspect]
     Active Substance: PREGABALIN
     Indication: FIBROMYALGIA
     Dosage: 600 MG, DAILY (THREE CAPSULES ONCE DAILY IN THE MORNING AND ONCE AT NOON AND TWO ONCE DAILY IN THE E
     Route: 048
  2. LYRICA [Suspect]
     Active Substance: PREGABALIN
     Indication: PAIN

REACTIONS (2)
  - Product use issue [Unknown]
  - Off label use [Unknown]
